FAERS Safety Report 5195009-7 (Version None)
Quarter: 2006Q4

REPORT INFORMATION
  Report Type: 
  Country: None (occurrence: None)
  Receive Date: 20061229
  Receipt Date: 20061221
  Transmission Date: 20070319
  Serious: Yes (Hospitalization)
  Sender: FDA-Public Use
  Company Number: US-BRISTOL-MYERS SQUIBB COMPANY-13622568

PATIENT
  Age: 50 Year
  Sex: Male
  Weight: 82 kg

DRUGS (5)
  1. CETUXIMAB [Suspect]
     Indication: RECTAL CANCER
     Route: 041
     Dates: start: 20061213, end: 20061213
  2. XELODA [Suspect]
     Indication: RECTAL CANCER
     Route: 048
     Dates: start: 20061213, end: 20061219
  3. OXALIPLATIN [Concomitant]
  4. ZOFRAN [Concomitant]
  5. KYTRIL [Concomitant]

REACTIONS (1)
  - CHEST DISCOMFORT [None]
